FAERS Safety Report 7784746-3 (Version None)
Quarter: 2011Q3

REPORT INFORMATION
  Report Type: 
  Country: None (occurrence: None)
  Receive Date: 20110928
  Receipt Date: 20110923
  Transmission Date: 20111222
  Serious: Yes (Other)
  Sender: FDA-Public Use
  Company Number: CHPA2011US13084

PATIENT
  Age: 53 Year
  Sex: Male

DRUGS (2)
  1. EX-LAX MAX STR LAX PILLS SENNA [Suspect]
     Indication: CONSTIPATION
     Dosage: 4 DF, QD
     Route: 048
  2. XANAX [Concomitant]
     Indication: PANIC ATTACK
     Dosage: UNK, UNK

REACTIONS (3)
  - HAEMATOCHEZIA [None]
  - DIARRHOEA [None]
  - ABDOMINAL PAIN [None]
